FAERS Safety Report 9462721 (Version 2)
Quarter: 2013Q3

REPORT INFORMATION
  Report Type: Spontaneous
  Country: US (occurrence: US)
  Receive Date: 20130816
  Receipt Date: 20130903
  Transmission Date: 20140515
  Serious: No
  Sender: FDA-Public Use
  Company Number: US-PFIZER INC-2013237180

PATIENT
  Age: 24 Year
  Sex: Female
  Weight: 56.69 kg

DRUGS (3)
  1. LIPITOR [Suspect]
     Indication: BLOOD CHOLESTEROL INCREASED
     Dosage: 40 MG, 1X/DAY
     Route: 048
     Dates: start: 20130805, end: 20130814
  2. CYMBALTA [Concomitant]
     Dosage: 30 MG, EVERY OTHER DAY
  3. CRESTOR [Concomitant]
     Dosage: UNK
     Dates: end: 20130804

REACTIONS (2)
  - Diarrhoea [Unknown]
  - Abdominal pain upper [Unknown]
